FAERS Safety Report 9587770 (Version 1)
Quarter: 2013Q4

REPORT INFORMATION
  Report Type: Spontaneous
  Country: KR (occurrence: KR)
  Receive Date: 20131003
  Receipt Date: 20131003
  Transmission Date: 20140711
  Serious: Yes (Death, Hospitalization)
  Sender: FDA-Public Use
  Company Number: KR-WATSON-2013-17312

PATIENT
  Age: 67 Year
  Sex: Male

DRUGS (6)
  1. PIPERACILLIN-TAZOBACTAM (UNKNOWN) [Suspect]
     Indication: PNEUMONIA
     Dosage: UNK
     Route: 065
  2. LEVOFLOXACIN (UNKNOWN) [Suspect]
     Indication: PNEUMONIA
     Dosage: UNK
     Route: 065
  3. COLISTIN [Suspect]
     Indication: PNEUMONIA
     Dosage: UNK
     Route: 065
  4. MEROPENEM (UNKNOWN) [Suspect]
     Indication: PNEUMONIA
     Dosage: UNK
     Route: 065
  5. CIPROFLOXACIN HYDROCHLORIDE (UNKNOWN) [Suspect]
     Indication: PNEUMONIA
     Dosage: UNK
     Route: 065
  6. OSELTAMIVIR [Concomitant]
     Indication: H1N1 INFLUENZA
     Dosage: 150 MG, BID
     Route: 065

REACTIONS (1)
  - Bronchopulmonary aspergillosis [Fatal]
